FAERS Safety Report 4885744-X (Version None)
Quarter: 2006Q1

REPORT INFORMATION
  Report Type: 
  Country: None (occurrence: None)
  Receive Date: 20060117
  Receipt Date: 20060105
  Transmission Date: 20060701
  Serious: Yes (Disabling)
  Sender: FDA-Public Use
  Company Number: 2006005473

PATIENT
  Age: 44 Year
  Sex: Female

DRUGS (1)
  1. DEPO-MEDROL [Suspect]
     Indication: ARTHRALGIA
     Dosage: SUBCUTANEOUS
     Route: 058
     Dates: start: 20031216

REACTIONS (7)
  - AMNESIA [None]
  - ECCHYMOSIS [None]
  - EXTRAVASATION BLOOD [None]
  - HYPERSENSITIVITY [None]
  - IDIOSYNCRATIC DRUG REACTION [None]
  - THIRST [None]
  - WEIGHT INCREASED [None]
